FAERS Safety Report 19244397 (Version 3)
Quarter: 2021Q3

REPORT INFORMATION
  Report Type: Report from Study
  Country: FR (occurrence: FR)
  Receive Date: 20210511
  Receipt Date: 20210714
  Transmission Date: 20211014
  Serious: Yes (Hospitalization, Other)
  Sender: FDA-Public Use
  Company Number: FR-BRISTOL-MYERS SQUIBB COMPANY-BMS-2021-044607

PATIENT
  Age: 41 Year
  Sex: Female

DRUGS (2)
  1. NIVOLUMAB [Suspect]
     Active Substance: NIVOLUMAB
     Indication: TRIPLE NEGATIVE BREAST CANCER
     Dosage: 360 MILLIGRAM, Q3WK
     Route: 042
     Dates: start: 20210301, end: 20210528
  2. IPILIMUMAB [Suspect]
     Active Substance: IPILIMUMAB
     Indication: TRIPLE NEGATIVE BREAST CANCER
     Dosage: 72 MILLIGRAM, Q6WK
     Route: 042
     Dates: start: 20210301, end: 20210504

REACTIONS (1)
  - Myocarditis [Recovered/Resolved]

NARRATIVE: CASE EVENT DATE: 20210504
